FAERS Safety Report 25736509 (Version 2)
Quarter: 2025Q4

REPORT INFORMATION
  Report Type: Report from Study
  Country: US (occurrence: US)
  Receive Date: 20250828
  Receipt Date: 20251010
  Transmission Date: 20260118
  Serious: No
  Sender: DECIPHERA PHARMACEUTICALS
  Company Number: US-DECIPHERA PHARMACEUTICALS LLC-2025US000927

PATIENT
  Age: 64 Year
  Sex: Female
  Weight: 63.764 kg

DRUGS (2)
  1. QINLOCK [Suspect]
     Active Substance: RIPRETINIB
     Indication: Breast cancer
     Dosage: 150 MILLIGRAM, BID
     Dates: start: 20250301
  2. QINLOCK [Suspect]
     Active Substance: RIPRETINIB
     Indication: Desmoid tumour
     Dosage: 150 MILLIGRAM, QD
     Dates: start: 20250702, end: 202507

REACTIONS (5)
  - Illness [Unknown]
  - Adverse event [Unknown]
  - Product use in unapproved indication [Unknown]
  - Incorrect dose administered [Unknown]
  - Inappropriate schedule of product administration [Unknown]

NARRATIVE: CASE EVENT DATE: 20250101
